FAERS Safety Report 23627950 (Version 1)
Quarter: 2024Q1

REPORT INFORMATION
  Report Type: Spontaneous
  Country: AU (occurrence: AU)
  Receive Date: 20240313
  Receipt Date: 20240313
  Transmission Date: 20240409
  Serious: Yes (Other)
  Sender: FDA-Public Use
  Company Number: AU-009507513-2403AUS001857

PATIENT
  Age: 48 Year
  Sex: Female

DRUGS (5)
  1. PEMBROLIZUMAB [Suspect]
     Active Substance: PEMBROLIZUMAB
     Dosage: 3 WEEKLY (Q3W)
     Dates: start: 2023
  2. CARBOPLATIN [Suspect]
     Active Substance: CARBOPLATIN
     Indication: HER2 negative breast cancer
     Dosage: WEEKLY (QW)
     Dates: start: 2023
  3. PACLITAXEL [Suspect]
     Active Substance: PACLITAXEL
     Indication: HER2 negative breast cancer
     Dosage: WEEKLY (QW)
     Dates: start: 2023
  4. CYCLOPHOSPHAMIDE [Suspect]
     Active Substance: CYCLOPHOSPHAMIDE
     Indication: HER2 negative breast cancer
     Dosage: 3 WEEKLY
     Dates: start: 2023
  5. ADRIAMYCIN [Suspect]
     Active Substance: DOXORUBICIN HYDROCHLORIDE
     Indication: HER2 negative breast cancer
     Dosage: 3 WEEKLY
     Dates: start: 2023

REACTIONS (18)
  - Immune-mediated thyroiditis [Unknown]
  - Pericardial effusion [Unknown]
  - Pulmonary oedema [Unknown]
  - Atrial fibrillation [Unknown]
  - Rash [Recovered/Resolved]
  - C-reactive protein increased [Unknown]
  - Malaise [Not Recovered/Not Resolved]
  - Oropharyngeal pain [Unknown]
  - Neck pain [Unknown]
  - Chills [Unknown]
  - Pain [Not Recovered/Not Resolved]
  - Pharyngeal swelling [Not Recovered/Not Resolved]
  - Pleural effusion [Unknown]
  - Chest pain [Unknown]
  - Mobility decreased [Unknown]
  - Pyrexia [Unknown]
  - Pleural effusion [Unknown]
  - Product use in unapproved indication [Unknown]

NARRATIVE: CASE EVENT DATE: 20230101
